FAERS Safety Report 6695864-5 (Version None)
Quarter: 2010Q2

REPORT INFORMATION
  Report Type: 
  Country: None (occurrence: None)
  Receive Date: 20100426
  Receipt Date: 20090727
  Transmission Date: 20101027
  Serious: No
  Sender: FDA-Public Use
  Company Number: A0796443A

PATIENT
  Sex: Male

DRUGS (4)
  1. ZOFRAN [Suspect]
     Indication: NAUSEA
     Dosage: 4MG UNKNOWN
     Route: 048
  2. REGLAN [Suspect]
     Indication: PROPHYLAXIS
     Route: 065
  3. FLUOROURACIL [Suspect]
     Indication: GASTRIC CANCER
     Route: 065
  4. CISPLATIN [Suspect]
     Indication: GASTRIC CANCER
     Route: 065

REACTIONS (3)
  - DRUG INEFFECTIVE [None]
  - NAUSEA [None]
  - VOMITING [None]
